FAERS Safety Report 6989359-9 (Version None)
Quarter: 2010Q3

REPORT INFORMATION
  Report Type: 
  Country: None (occurrence: None)
  Receive Date: 20100916
  Receipt Date: 20091125
  Transmission Date: 20110219
  Serious: Yes (Disabling, Other)
  Sender: FDA-Public Use
  Company Number: GB-PFIZER INC-2009302439

PATIENT
  Age: 65 Year

DRUGS (10)
  1. LYRICA [Suspect]
     Indication: NEURALGIA
     Dosage: 1 DF, 1X/DAY
     Route: 048
  2. LYRICA [Suspect]
     Dosage: 1 DF, 2X/DAY
  3. ACICLOVIR [Concomitant]
     Indication: NEURALGIA
     Dosage: 800 MG FIVE TIMES DAILY
     Route: 048
     Dates: start: 20060830
  4. AMITRIPTYLINE [Concomitant]
     Indication: NEURALGIA
     Dosage: 10 MG, 1X/DAY
     Route: 048
     Dates: start: 20061106
  5. AMITRIPTYLINE [Concomitant]
     Dosage: 25 MG, SINGLE
     Route: 048
     Dates: start: 20061116
  6. DICLOFENAC [Concomitant]
     Indication: NEURALGIA
     Dosage: 50 MG, 3X/DAY
     Route: 048
  7. GABAPENTIN [Concomitant]
     Indication: NEURALGIA
     Dosage: 300 MG, 2X/DAY
     Route: 048
     Dates: start: 20070205
  8. GABAPENTIN [Concomitant]
     Dosage: 300 MG, 3X/DAY
     Route: 048
     Dates: end: 20070426
  9. PREGABALIN [Concomitant]
     Dosage: 75 MG, UNK
     Dates: start: 20070530
  10. TRAMADOL [Concomitant]
     Indication: NEURALGIA
     Dosage: 50 MG, SINGLE
     Route: 048

REACTIONS (2)
  - BLINDNESS [None]
  - CHOROIDAL NEOVASCULARISATION [None]
